FAERS Safety Report 18100466 (Version 3)
Quarter: 2021Q2

REPORT INFORMATION
  Report Type: Report from Study
  Country: CA (occurrence: CA)
  Receive Date: 20200731
  Receipt Date: 20210517
  Transmission Date: 20210717
  Serious: Yes (Hospitalization)
  Sender: FDA-Public Use
  Company Number: CA-JNJFOC-20200617059

PATIENT
  Age: 63 Year
  Sex: Female
  Weight: 54.03 kg

DRUGS (1)
  1. REMICADE [Suspect]
     Active Substance: INFLIXIMAB
     Indication: COLITIS ULCERATIVE
     Dosage: ON 11?JUN?2020, PATIENT RECEIVED 99TH INFUSION OF INFLIXIMAB, RECOMBINANT 400 MG
     Route: 042
     Dates: start: 20081110

REACTIONS (1)
  - Breast cancer [Recovering/Resolving]

NARRATIVE: CASE EVENT DATE: 202004
